FAERS Safety Report 8043882-7 (Version None)
Quarter: 2012Q1

REPORT INFORMATION
  Report Type: 
  Country: None (occurrence: None)
  Receive Date: 20120113
  Receipt Date: 20120106
  Transmission Date: 20120608
  Serious: No
  Sender: FDA-Public Use
  Company Number: US-BIOGENIDEC-2012BI000882

PATIENT
  Age: 50 Year
  Sex: Male

DRUGS (3)
  1. TYSABRI [Suspect]
     Indication: MULTIPLE SCLEROSIS
     Route: 042
     Dates: start: 20110816
  2. AVONEX [Concomitant]
     Indication: MULTIPLE SCLEROSIS
     Route: 030
     Dates: start: 20000614
  3. AVONEX [Concomitant]
     Route: 030

REACTIONS (5)
  - AGITATION [None]
  - INSOMNIA [None]
  - INAPPROPRIATE AFFECT [None]
  - HAND FRACTURE [None]
  - ANGER [None]
